FAERS Safety Report 10381510 (Version 1)
Quarter: 2014Q3

REPORT INFORMATION
  Report Type: Spontaneous
  Country: US (occurrence: None)
  Receive Date: 20140811
  Receipt Date: 20140811
  Transmission Date: 20150326
  Serious: Yes (Other)
  Sender: FDA-Public Use
  Company Number: 2014SEB00013

PATIENT
  Age: 53 Year
  Sex: Female
  Weight: 52.2 kg

DRUGS (2)
  1. PREVACID [Concomitant]
     Active Substance: LANSOPRAZOLE
  2. ANALPRAM HC [Suspect]
     Active Substance: HYDROCORTISONE ACETATE\PRAMOXINE HYDROCHLORIDE
     Indication: HAEMORRHOIDS
     Route: 061
     Dates: start: 1999

REACTIONS (12)
  - Serum ferritin decreased [None]
  - Vitamin B12 decreased [None]
  - Dyspnoea [None]
  - Vitamin D deficiency [None]
  - Memory impairment [None]
  - Iron deficiency anaemia [None]
  - Transient ischaemic attack [None]
  - Aphasia [None]
  - Fatigue [None]
  - Abasia [None]
  - Hypoaesthesia [None]
  - Folate deficiency [None]

NARRATIVE: CASE EVENT DATE: 2008
